FAERS Safety Report 16078034 (Version 1)
Quarter: 2019Q1

REPORT INFORMATION
  Report Type: Spontaneous
  Country: DE (occurrence: DE)
  Receive Date: 20190315
  Receipt Date: 20190315
  Transmission Date: 20190418
  Serious: Yes (Other)
  Sender: FDA-Public Use
  Company Number: IND-DE-009507513-1903DEU002424

PATIENT
  Age: 26 Year
  Sex: Female
  Weight: 60 kg

DRUGS (6)
  1. DIMENHYDRINATE. [Suspect]
     Active Substance: DIMENHYDRINATE
     Indication: NAUSEA
     Dosage: UNK
  2. VENLAFAXINE HYDROCHLORIDE. [Suspect]
     Active Substance: VENLAFAXINE HYDROCHLORIDE
     Indication: PRODUCT USED FOR UNKNOWN INDICATION
     Dosage: 9000 MILLIGRAM, ONCE, 60 TABLETS MAXIMUM
     Route: 048
     Dates: start: 20190215, end: 20190215
  3. NARATRIPTAN [Suspect]
     Active Substance: NARATRIPTAN HYDROCHLORIDE
     Indication: PRODUCT USED FOR UNKNOWN INDICATION
     Dosage: 4 DOSAGE FORM, ONCE
     Route: 048
     Dates: start: 20190215, end: 20190215
  4. DIMENHYDRINATE. [Suspect]
     Active Substance: DIMENHYDRINATE
     Indication: VOMITING
     Dosage: 4 DOSAGE FORM, ONCE
     Route: 048
     Dates: start: 20190215, end: 20190215
  5. ETORICOXIB LIBRA PHARM 60 MG FILMTABLETTEN [Suspect]
     Active Substance: ETORICOXIB
     Indication: PRODUCT USED FOR UNKNOWN INDICATION
     Dosage: 4 TABLETS MAXIMUM
     Route: 048
     Dates: start: 20190215, end: 20190215
  6. ETORICOXIB LIBRA PHARM 60 MG FILMTABLETTEN [Suspect]
     Active Substance: ETORICOXIB
     Dosage: UNK
     Route: 048

REACTIONS (2)
  - Slow response to stimuli [Unknown]
  - Accidental overdose [Unknown]
